FAERS Safety Report 22166184 (Version 2)
Quarter: 2023Q2

REPORT INFORMATION
  Report Type: Spontaneous
  Country: ZA (occurrence: ZA)
  Receive Date: 20230403
  Receipt Date: 20230418
  Transmission Date: 20230722
  Serious: Yes (Other)
  Sender: FDA-Public Use
  Company Number: ZA-BAYER-2023A042457

PATIENT
  Age: 80 Year
  Sex: Female

DRUGS (1)
  1. EYLEA [Suspect]
     Active Substance: AFLIBERCEPT
     Indication: Neovascular age-related macular degeneration
     Dosage: SOLUTION FOR INJECTION,40MG/ML

REACTIONS (6)
  - Toxic anterior segment syndrome [Unknown]
  - Endophthalmitis [Unknown]
  - Non-infectious endophthalmitis [Unknown]
  - Vitreous disorder [Unknown]
  - Anterior chamber cell [Unknown]
  - Drug hypersensitivity [Unknown]
